FAERS Safety Report 4437650-2 (Version None)
Quarter: 2004Q3

REPORT INFORMATION
  Report Type: 
  Country: None (occurrence: None)
  Receive Date: 20040728
  Receipt Date: 20040402
  Transmission Date: 20050211
  Serious: No
  Sender: FDA-Public Use
  Company Number: USA040362548

PATIENT
  Age: 13 Year
  Sex: Male
  Weight: 44 kg

DRUGS (1)
  1. STRATTERA [Suspect]
     Indication: ATTENTION DEFICIT/HYPERACTIVITY DISORDER
     Dosage: 60 MG DAY
     Dates: start: 20040310, end: 20040317

REACTIONS (6)
  - BLOOD PRESSURE INCREASED [None]
  - CONFUSIONAL STATE [None]
  - HEART RATE INCREASED [None]
  - LETHARGY [None]
  - MYDRIASIS [None]
  - SOMNOLENCE [None]
